FAERS Safety Report 8245279-3 (Version None)
Quarter: 2012Q1

REPORT INFORMATION
  Report Type: 
  Country: None (occurrence: None)
  Receive Date: 20120329
  Receipt Date: 20120321
  Transmission Date: 20120608
  Serious: Yes (Life-Threatening, Other)
  Sender: FDA-Public Use
  Company Number: JP-BRISTOL-MYERS SQUIBB COMPANY-16380610

PATIENT
  Age: 61 Year
  Sex: Female

DRUGS (11)
  1. ORENCIA [Suspect]
     Indication: RHEUMATOID ARTHRITIS
     Route: 041
     Dates: start: 20111025, end: 20120117
  2. PREDNISOLONE [Concomitant]
     Indication: RHEUMATOID ARTHRITIS
     Route: 048
     Dates: start: 20120111
  3. ALOSENN [Concomitant]
     Dosage: 1PCKT PER DY
     Dates: start: 20120111
  4. ACTEMRA [Concomitant]
     Dosage: 22AUG10-22AUG10(8MG/KG);22SEP10-22SEP10(12MG/KG);NOV10-5DEC10(16MG/KG)
     Dates: start: 20100822, end: 20101205
  5. COTRIM [Concomitant]
     Dosage: 1DF=1TAB PER DY
     Dates: start: 20120111
  6. RABEPRAZOLE SODIUM [Concomitant]
     Dosage: 1DF=1TAB PER DY
     Dates: start: 20120111
  7. ALENDRONATE SODIUM [Concomitant]
     Dosage: 1TAB PER DY
     Dates: start: 20120111
  8. MAGNESIUM SULFATE [Concomitant]
     Dosage: 3TABS PER DY
     Dates: start: 20120111
  9. NORVASC [Concomitant]
     Dosage: 1*2TAB PER DY
     Dates: start: 20120111
  10. LASIX [Concomitant]
     Dosage: 1TAB PER DY
     Dates: start: 20120111
  11. URSO 250 [Concomitant]
     Dosage: 3TABS PER DY
     Dates: start: 20120111

REACTIONS (9)
  - RENAL FAILURE [None]
  - INTERSTITIAL LUNG DISEASE [None]
  - CONDITION AGGRAVATED [None]
  - CARDIAC FAILURE [None]
  - OSTEONECROSIS [None]
  - SECONDARY AMYLOIDOSIS [None]
  - ARTHRALGIA [None]
  - TENOSYNOVITIS [None]
  - CELLULITIS [None]
